FAERS Safety Report 8004027-2 (Version None)
Quarter: 2011Q4

REPORT INFORMATION
  Report Type: 
  Country: None (occurrence: None)
  Receive Date: 20111222
  Receipt Date: 20111214
  Transmission Date: 20120403
  Serious: Yes (Hospitalization, Disabling, Other)
  Sender: FDA-Public Use
  Company Number: US-MERCK-1110USA03836

PATIENT
  Age: 62 Year
  Sex: Female
  Weight: 67 kg

DRUGS (4)
  1. FOSAMAX [Suspect]
     Route: 048
     Dates: start: 20080101, end: 20090101
  2. FOSAMAX [Suspect]
     Indication: OSTEOPOROSIS
     Route: 048
     Dates: start: 19970101, end: 20050101
  3. FOSAMAX [Suspect]
     Route: 048
     Dates: start: 19970101, end: 20050101
  4. FOSAMAX PLUS D [Suspect]
     Indication: OSTEOPOROSIS
     Route: 048
     Dates: start: 20050101, end: 20080201

REACTIONS (38)
  - DEAFNESS [None]
  - APPENDIX DISORDER [None]
  - HYPOTENSION [None]
  - LEFT ATRIAL DILATATION [None]
  - BURSITIS [None]
  - TOOTH DISORDER [None]
  - PLEURAL FIBROSIS [None]
  - CATARACT [None]
  - FALL [None]
  - OVERDOSE [None]
  - IMPAIRED HEALING [None]
  - VITAMIN D DEFICIENCY [None]
  - POLLAKIURIA [None]
  - SYNCOPE [None]
  - HAEMATOMA [None]
  - ANAEMIA POSTOPERATIVE [None]
  - NAUSEA [None]
  - TREATMENT FAILURE [None]
  - HEPATITIS [None]
  - FALLOPIAN TUBE CYST [None]
  - ADVERSE EVENT [None]
  - ANAL FISTULA [None]
  - VOMITING [None]
  - URINARY TRACT INFECTION [None]
  - FEMUR FRACTURE [None]
  - OVARIAN DISORDER [None]
  - HYPOVOLAEMIA [None]
  - URINARY INCONTINENCE [None]
  - DERMOID CYST [None]
  - OVARIAN CYST [None]
  - BUNDLE BRANCH BLOCK RIGHT [None]
  - TENDONITIS [None]
  - PAIN IN EXTREMITY [None]
  - SPINAL OSTEOARTHRITIS [None]
  - OSTEOARTHRITIS [None]
  - PELVIC FRACTURE [None]
  - ARTHRALGIA [None]
  - FATIGUE [None]
